APPROVED DRUG PRODUCT: CETRORELIX ACETATE
Active Ingredient: CETRORELIX ACETATE
Strength: EQ 0.25MG BASE/VIAL
Dosage Form/Route: POWDER;SUBCUTANEOUS
Application: A217776 | Product #001 | TE Code: AP
Applicant: QILU PHARMACEUTICAL CO LTD
Approved: Apr 16, 2024 | RLD: No | RS: No | Type: RX